FAERS Safety Report 5682243-2 (Version None)
Quarter: 2008Q1

REPORT INFORMATION
  Report Type: 
  Country: None (occurrence: None)
  Receive Date: 20080325
  Receipt Date: 20080313
  Transmission Date: 20080703
  Serious: Yes (Other)
  Sender: FDA-Public Use
  Company Number: 100#08#2008-01591

PATIENT
  Age: 9 Year
  Sex: Female

DRUGS (4)
  1. CYCLOSPORINE [Suspect]
     Indication: GRAFT VERSUS HOST DISEASE
  2. ANTITHYMOCYTE GLOBULIN (ANTITHYMOCYTE GLOBULIN) [Suspect]
     Indication: APLASTIC ANAEMIA
  3. CYCLOPHOSPHAMIDE [Concomitant]
  4. METHOTREXATE [Concomitant]

REACTIONS (7)
  - ACUTE GRAFT VERSUS HOST DISEASE IN SKIN [None]
  - ATAXIA [None]
  - CONVULSION [None]
  - DIPLOPIA [None]
  - GRAFT VERSUS HOST DISEASE [None]
  - GUILLAIN-BARRE SYNDROME [None]
  - MILLER FISHER SYNDROME [None]
